FAERS Safety Report 6701606-7 (Version None)
Quarter: 2010Q2

REPORT INFORMATION
  Report Type: 
  Country: None (occurrence: None)
  Receive Date: 20100429
  Receipt Date: 20100419
  Transmission Date: 20101027
  Serious: Yes (Other)
  Sender: FDA-Public Use
  Company Number: US-ELI_LILLY_AND_COMPANY-US201003006919

PATIENT
  Sex: Female
  Weight: 83.447 kg

DRUGS (7)
  1. BYETTA [Suspect]
     Indication: TYPE 2 DIABETES MELLITUS
     Dosage: 5 UG, 2/D
     Route: 058
     Dates: start: 20060201, end: 20060501
  2. BYETTA [Suspect]
     Dosage: 10 UG, 2/D
     Route: 058
     Dates: start: 20060501, end: 20100301
  3. GLUCOPHAGE [Concomitant]
     Indication: DIABETES MELLITUS
  4. STARLIX [Concomitant]
  5. ACTOS [Concomitant]
     Indication: DIABETES MELLITUS
  6. COZAAR [Concomitant]
     Indication: HYPERTENSION
  7. BONIVA [Concomitant]
     Indication: OSTEOPOROSIS

REACTIONS (5)
  - BLOOD GLUCOSE INCREASED [None]
  - DRUG INEFFECTIVE [None]
  - GLYCOSYLATED HAEMOGLOBIN INCREASED [None]
  - HEPATIC STEATOSIS [None]
  - PANCREATITIS [None]
